FAERS Safety Report 5448589-8 (Version None)
Quarter: 2007Q3

REPORT INFORMATION
  Report Type: 
  Country: None (occurrence: None)
  Receive Date: 20070905
  Receipt Date: 20070820
  Transmission Date: 20080115
  Serious: Yes (Hospitalization)
  Sender: FDA-Public Use
  Company Number: 2007US003828

PATIENT
  Age: 60 Year
  Sex: Female
  Weight: 117 kg

DRUGS (15)
  1. ALOXI [Suspect]
     Indication: PROPHYLAXIS OF NAUSEA AND VOMITING
     Dosage: 0.25 MG, QWK, IV BOLUS; 0.25 MG, QWK, IV BOLUS
     Route: 040
     Dates: start: 20050128, end: 20051014
  2. ALOXI [Suspect]
     Indication: PROPHYLAXIS OF NAUSEA AND VOMITING
     Dosage: 0.25 MG, QWK, IV BOLUS; 0.25 MG, QWK, IV BOLUS
     Route: 040
     Dates: start: 20070608, end: 20070810
  3. TAGAMET [Suspect]
     Indication: PREMEDICATION
     Dosage: 300 MG, SINGLE, INTRAVENOUS; 300 MG, SINGLE, INTRAVENOUS
     Route: 042
     Dates: start: 20050128, end: 20051014
  4. TAGAMET [Suspect]
     Indication: PREMEDICATION
     Dosage: 300 MG, SINGLE, INTRAVENOUS; 300 MG, SINGLE, INTRAVENOUS
     Route: 042
     Dates: start: 20070608, end: 20070810
  5. DECADRON [Suspect]
     Indication: PREMEDICATION
     Dosage: 20 MG, QWK, INTRAVENOUS; 10 MG, QWK, INTRAVENOUS; 20 MG, QWK, INTRAVENOUS
     Route: 042
     Dates: start: 20050128, end: 20050722
  6. DECADRON [Suspect]
     Indication: PREMEDICATION
     Dosage: 20 MG, QWK, INTRAVENOUS; 10 MG, QWK, INTRAVENOUS; 20 MG, QWK, INTRAVENOUS
     Route: 042
     Dates: start: 20050805, end: 20051014
  7. DECADRON [Suspect]
     Indication: PREMEDICATION
     Dosage: 20 MG, QWK, INTRAVENOUS; 10 MG, QWK, INTRAVENOUS; 20 MG, QWK, INTRAVENOUS
     Route: 042
     Dates: start: 20070608, end: 20070810
  8. CARBOPLATIN [Concomitant]
  9. TAXOL [Concomitant]
  10. ARANESP [Concomitant]
  11. BENADRYL /00000402/ (DIPHENHYDRAMINE HYDROCHLORIDE) [Concomitant]
  12. LEXAPRO [Concomitant]
  13. KLONOPIN [Concomitant]
  14. ATENOLOL [Concomitant]
  15. LASIX [Concomitant]

REACTIONS (39)
  - ASCITES [None]
  - BLOOD ALBUMIN DECREASED [None]
  - BLOOD GLUCOSE INCREASED [None]
  - BLOOD PRESSURE IMMEASURABLE [None]
  - BLOOD PRESSURE INCREASED [None]
  - CARDIAC ARREST [None]
  - CLOSTRIDIUM DIFFICILE COLITIS [None]
  - CONDUCTION DISORDER [None]
  - DEEP VEIN THROMBOSIS [None]
  - DIARRHOEA [None]
  - DISEASE RECURRENCE [None]
  - DIZZINESS [None]
  - ECHOCARDIOGRAM ABNORMAL [None]
  - ELECTROCARDIOGRAM QT PROLONGED [None]
  - FEELING ABNORMAL [None]
  - FEELING COLD [None]
  - FLUSHING [None]
  - HAEMOGLOBIN DECREASED [None]
  - HEART RATE INCREASED [None]
  - HYPERSENSITIVITY [None]
  - HYPERTENSION [None]
  - HYPOCALCAEMIA [None]
  - HYPOMAGNESAEMIA [None]
  - HYPOTENSION [None]
  - MUSCULOSKELETAL STIFFNESS [None]
  - NERVOUSNESS [None]
  - OVARIAN CANCER [None]
  - OXYGEN SATURATION DECREASED [None]
  - PALLOR [None]
  - PARATRACHEAL LYMPHADENOPATHY [None]
  - PLEURAL EFFUSION [None]
  - PRURITUS [None]
  - PYREXIA [None]
  - RASH [None]
  - RENAL TUBULAR NECROSIS [None]
  - RESPIRATORY RATE DECREASED [None]
  - SINUS TACHYCARDIA [None]
  - TREMOR [None]
  - UNRESPONSIVE TO STIMULI [None]
